FAERS Safety Report 10730893 (Version 1)
Quarter: 2015Q1

REPORT INFORMATION
  Report Type: Spontaneous
  Country: DE (occurrence: DE)
  Receive Date: 20150122
  Receipt Date: 20150122
  Transmission Date: 20150721
  Serious: Yes (Other)
  Sender: FDA-Public Use
  Company Number: DE-TEVA-533455GER

PATIENT
  Sex: Female

DRUGS (5)
  1. VALSARTAN. [Suspect]
     Active Substance: VALSARTAN
     Route: 065
  2. ONDASETRON [Suspect]
     Active Substance: ONDANSETRON
     Route: 065
  3. DUROGESIC [Suspect]
     Active Substance: FENTANYL
     Route: 065
  4. AMLODIPIN [Suspect]
     Active Substance: AMLODIPINE BESYLATE
     Route: 065
  5. EFFENTORA 100 MIKROGRAMM BUCCALTABLETTEN [Suspect]
     Active Substance: FENTANYL CITRATE
     Route: 002

REACTIONS (7)
  - Visual acuity reduced [Unknown]
  - Fall [Unknown]
  - Traumatic fracture [Unknown]
  - Fatigue [Unknown]
  - Rib fracture [None]
  - Constipation [Unknown]
  - Hyperhidrosis [Unknown]
